FAERS Safety Report 7738055-9 (Version None)
Quarter: 2011Q3

REPORT INFORMATION
  Report Type: 
  Country: None (occurrence: None)
  Receive Date: 20110906
  Receipt Date: 20110822
  Transmission Date: 20111222
  Serious: Yes (Hospitalization)
  Sender: FDA-Public Use
  Company Number: 2011SGN00180

PATIENT
  Age: 80 Year
  Sex: Male
  Weight: 93.2 kg

DRUGS (5)
  1. VINCRISTINE [Suspect]
  2. DOXORUBICIN HCL [Suspect]
     Indication: LYMPHOMA
     Dosage: 50 MG/M2, Q21D, INTRAVENOUS
     Route: 042
     Dates: start: 20110808, end: 20110808
  3. SGN-35 (CAC10-VCMMAE) INJECTION BRENTUXIMAB [Suspect]
     Indication: LYMPHOMA
     Dosage: 1.8 MG/KG, Q21D, INTRAVENOUS
     Route: 042
     Dates: start: 20110808, end: 20110808
  4. CYCLOPHOSPHAMIDE [Suspect]
     Indication: LYMPHOMA
     Dosage: 750 MG/M2, Q21D, INTRAVENOUS
     Route: 042
     Dates: start: 20110808, end: 20110808
  5. PREDNISONE [Suspect]
     Indication: LYMPHOMA
     Dosage: 100 MG/24H, Q21D, ORAL
     Route: 048
     Dates: start: 20110808, end: 20110808

REACTIONS (1)
  - FEBRILE NEUTROPENIA [None]
